FAERS Safety Report 8842245 (Version 1)
Quarter: 2012Q4

REPORT INFORMATION
  Report Type: Spontaneous
  Country: US (occurrence: None)
  Receive Date: 20121015
  Receipt Date: 20121015
  Transmission Date: 20130627
  Serious: Yes (Other)
  Sender: FDA-Public Use
  Company Number: None

PATIENT
  Age: 39 Year
  Sex: Female
  Weight: 83.92 kg

DRUGS (1)
  1. VIORELE [Suspect]
     Indication: BIRTH CONTROL
     Route: 048
     Dates: start: 20121007, end: 20121014

REACTIONS (3)
  - Abdominal distension [None]
  - Abdominal discomfort [None]
  - Feeling abnormal [None]
